FAERS Safety Report 8434627-7 (Version None)
Quarter: 2012Q2

REPORT INFORMATION
  Report Type: 
  Country: None (occurrence: None)
  Receive Date: 20120614
  Receipt Date: 20120608
  Transmission Date: 20120825
  Serious: No
  Sender: FDA-Public Use
  Company Number: US-BIOGENIDEC-2012BI020488

PATIENT
  Age: 30 Year
  Sex: Female

DRUGS (2)
  1. AVONEX [Suspect]
     Indication: MULTIPLE SCLEROSIS
     Route: 030
     Dates: start: 20111202, end: 20120501
  2. AVONEX [Suspect]
     Route: 030
     Dates: start: 20120501

REACTIONS (4)
  - TREMOR [None]
  - HYPERTHYROIDISM [None]
  - HYPERHIDROSIS [None]
  - WEIGHT DECREASED [None]
